FAERS Safety Report 7703712-7 (Version None)
Quarter: 2011Q3

REPORT INFORMATION
  Report Type: 
  Country: None (occurrence: None)
  Receive Date: 20110823
  Receipt Date: 20110812
  Transmission Date: 20111222
  Serious: Yes (Hospitalization)
  Sender: FDA-Public Use
  Company Number: CA-SANOFI-AVENTIS-2011SA052272

PATIENT
  Sex: Male

DRUGS (3)
  1. PLAVIX [Suspect]
     Route: 065
  2. RISPERIDONE [Suspect]
     Route: 065
  3. PLAVIX [Suspect]
     Route: 065

REACTIONS (1)
  - LOSS OF CONSCIOUSNESS [None]
